FAERS Safety Report 20664816 (Version 2)
Quarter: 2022Q2

REPORT INFORMATION
  Report Type: Spontaneous
  Country: US (occurrence: US)
  Receive Date: 20220401
  Receipt Date: 20220608
  Transmission Date: 20220720
  Serious: Yes (Other)
  Sender: FDA-Public Use
  Company Number: US-NOVARTISPH-NVSC2022US073440

PATIENT
  Age: 2 Year
  Sex: Male

DRUGS (8)
  1. CANAKINUMAB [Suspect]
     Active Substance: CANAKINUMAB
     Indication: Still^s disease
     Dosage: 4 MG/KG, Q4W
     Route: 058
  2. CANAKINUMAB [Suspect]
     Active Substance: CANAKINUMAB
     Indication: Haemophagocytic lymphohistiocytosis
  3. METHYLPREDNISOLONE [Concomitant]
     Active Substance: METHYLPREDNISOLONE
     Indication: Still^s disease
     Dosage: 30 MG/KG
     Route: 042
  4. METHYLPREDNISOLONE [Concomitant]
     Active Substance: METHYLPREDNISOLONE
     Indication: Haemophagocytic lymphohistiocytosis
  5. CYCLOSPORINE [Concomitant]
     Active Substance: CYCLOSPORINE
     Indication: Still^s disease
     Dosage: 4 MG/KG, BID
     Route: 050
  6. CYCLOSPORINE [Concomitant]
     Active Substance: CYCLOSPORINE
     Indication: Haemophagocytic lymphohistiocytosis
  7. PREDNISOLONE [Concomitant]
     Active Substance: PREDNISOLONE
     Indication: Still^s disease
     Dosage: UNK
     Route: 065
  8. PREDNISOLONE [Concomitant]
     Active Substance: PREDNISOLONE
     Indication: Haemophagocytic lymphohistiocytosis

REACTIONS (2)
  - Interstitial lung disease [Unknown]
  - Product use issue [Unknown]
